FAERS Safety Report 13865645 (Version 1)
Quarter: 2017Q3

REPORT INFORMATION
  Report Type: Spontaneous
  Country: US (occurrence: US)
  Receive Date: 20170814
  Receipt Date: 20170814
  Transmission Date: 20171127
  Serious: No
  Sender: FDA-Public Use
  Company Number: US-ASTRAZENECA-2017SE80004

PATIENT
  Age: 27504 Day
  Sex: Female
  Weight: 59 kg

DRUGS (2)
  1. ASPIRIN. [Suspect]
     Active Substance: ASPIRIN
     Route: 065
  2. BRILINTA [Suspect]
     Active Substance: TICAGRELOR
     Indication: STENT PLACEMENT
     Route: 048
     Dates: start: 20170726

REACTIONS (7)
  - Feeling drunk [Not Recovered/Not Resolved]
  - Malaise [Not Recovered/Not Resolved]
  - Impaired work ability [Not Recovered/Not Resolved]
  - Aphonia [Not Recovered/Not Resolved]
  - Feeling abnormal [Unknown]
  - Drug hypersensitivity [Unknown]
  - Abdominal discomfort [Not Recovered/Not Resolved]

NARRATIVE: CASE EVENT DATE: 20170728
